FAERS Safety Report 21081512 (Version 3)
Quarter: 2022Q3

REPORT INFORMATION
  Report Type: Report from Study
  Country: IN (occurrence: IN)
  Receive Date: 20220714
  Receipt Date: 20220925
  Transmission Date: 20221026
  Serious: Yes (Other)
  Sender: FDA-Public Use
  Company Number: IN-JNJFOC-20220710116

PATIENT

DRUGS (5)
  1. SIRTURO [Suspect]
     Active Substance: BEDAQUILINE FUMARATE
     Indication: Tuberculosis
     Dosage: 24-36 WEEKS
     Route: 048
  2. SIRTURO [Suspect]
     Active Substance: BEDAQUILINE FUMARATE
     Dosage: FOR 22 WEEKS
     Route: 048
  3. DELAMANID [Suspect]
     Active Substance: DELAMANID
     Indication: Tuberculosis
     Dosage: 24-36 WEEKS
     Route: 048
  4. LINEZOLID [Suspect]
     Active Substance: LINEZOLID
     Indication: Tuberculosis
     Dosage: 24-36 WEEKS
     Route: 048
  5. CLOFAZIMINE [Suspect]
     Active Substance: CLOFAZIMINE
     Indication: Tuberculosis
     Dosage: 24-36 WEEKS, 100 OR 200 MG BASED ON THE BODY WEIGHT FOR 24 WEEKS
     Route: 048

REACTIONS (15)
  - Electrocardiogram QT prolonged [Recovering/Resolving]
  - Aspartate aminotransferase increased [Recovering/Resolving]
  - Alanine aminotransferase increased [Recovering/Resolving]
  - Neuropathy peripheral [Recovering/Resolving]
  - Thrombocytopenia [Recovered/Resolved]
  - Amylase increased [Recovering/Resolving]
  - Drug ineffective [Unknown]
  - Lipase increased [Recovering/Resolving]
  - Drug resistance [Unknown]
  - Anaemia [Recovering/Resolving]
  - Blood bilirubin increased [Recovered/Resolved]
  - Chest pain [Recovered/Resolved]
  - Dermatitis acneiform [Recovered/Resolved]
  - Vision blurred [Unknown]
  - Skin hyperpigmentation [Recovering/Resolving]
